FAERS Safety Report 7312118-4 (Version None)
Quarter: 2011Q1

REPORT INFORMATION
  Report Type: 
  Country: None (occurrence: None)
  Receive Date: 20110224
  Receipt Date: 20110211
  Transmission Date: 20110831
  Serious: Yes (Other)
  Sender: FDA-Public Use
  Company Number: GXKR2007GB10566

PATIENT
  Age: 27 Year
  Sex: Male

DRUGS (9)
  1. IBUPROFEN [Suspect]
     Dosage: UNK, UNK
     Route: 065
     Dates: start: 20020820
  2. NUROFEN [Suspect]
     Dosage: UNK, UNK
     Route: 065
     Dates: start: 20020820
  3. LITHIUM CARBONATE [Concomitant]
     Route: 065
  4. ASPIRIN [Suspect]
     Dosage: UNK
     Route: 048
  5. LOFEPRAMINE [Suspect]
     Route: 065
  6. FLUOXETINE [Concomitant]
     Indication: DEPRESSION
     Route: 065
  7. METHYLENEDIOXYAMPHETAMINE [Concomitant]
     Route: 065
  8. CODEINE SULFATE [Suspect]
     Dosage: UNK, UNK
     Route: 065
     Dates: start: 20020820
  9. SEROXAT [Suspect]
     Indication: PHOBIA
     Dosage: UNK, QD
     Route: 065
     Dates: start: 19990901, end: 20021201

REACTIONS (11)
  - INTENTIONAL OVERDOSE [None]
  - AGGRESSION [None]
  - DEPRESSION [None]
  - SUICIDE ATTEMPT [None]
  - DRUG WITHDRAWAL SYNDROME [None]
  - CONSTIPATION [None]
  - SEXUAL DYSFUNCTION [None]
  - SUICIDAL IDEATION [None]
  - SOCIAL PHOBIA [None]
  - VISION BLURRED [None]
  - DRY MOUTH [None]
